FAERS Safety Report 21232182 (Version 3)
Quarter: 2023Q4

REPORT INFORMATION
  Report Type: Other
  Country: US (occurrence: None)
  Receive Date: 20220819
  Receipt Date: 20231025
  Transmission Date: 20240110
  Serious: Yes (Other)
  Sender: FDA-Public Use
  Company Number: US-ROCHE-3159510

PATIENT
  Age: 50 Year
  Sex: Female
  Weight: 92.616 kg

DRUGS (10)
  1. OCREVUS [Suspect]
     Active Substance: OCRELIZUMAB
     Indication: Multiple sclerosis
     Dosage: DATE OF TREATMENT; 27/SEP/2023
     Route: 042
     Dates: start: 2019
  2. OCREVUS [Suspect]
     Active Substance: OCRELIZUMAB
     Indication: Secondary progressive multiple sclerosis
  3. BACLOFEN [Concomitant]
     Active Substance: BACLOFEN
  4. CRANBERRY [Concomitant]
     Active Substance: CRANBERRY
  5. DITROPAN XL [Concomitant]
     Active Substance: OXYBUTYNIN CHLORIDE
  6. DALFAMPRIDINE [Concomitant]
     Active Substance: DALFAMPRIDINE
  7. PAROXETINE [Concomitant]
     Active Substance: PAROXETINE
  8. AMPYRA [Concomitant]
     Active Substance: DALFAMPRIDINE
  9. PAXIL [Concomitant]
     Active Substance: PAROXETINE HYDROCHLORIDE
  10. VITAMIN D3 [Concomitant]
     Active Substance: CHOLECALCIFEROL

REACTIONS (4)
  - JC polyomavirus test positive [Unknown]
  - COVID-19 [Recovered/Resolved]
  - Muscular weakness [Unknown]
  - Fall [Unknown]

NARRATIVE: CASE EVENT DATE: 20221104
